FAERS Safety Report 9750554 (Version 1)
Quarter: 2013Q4

REPORT INFORMATION
  Report Type: Spontaneous
  Country: US (occurrence: US)
  Receive Date: 20131212
  Receipt Date: 20131212
  Transmission Date: 20140711
  Serious: No
  Sender: FDA-Public Use
  Company Number: US-BIOGENIDEC-2013BI091742

PATIENT
  Age: 64 Year
  Sex: Female

DRUGS (2)
  1. TECFIDERA [Suspect]
     Indication: MULTIPLE SCLEROSIS
     Route: 048
     Dates: start: 20130827, end: 20130902
  2. TECFIDERA [Suspect]
     Indication: MULTIPLE SCLEROSIS
     Route: 048
     Dates: start: 20130903

REACTIONS (6)
  - Paraesthesia [Unknown]
  - Diarrhoea [Unknown]
  - Nausea [Unknown]
  - Influenza like illness [Not Recovered/Not Resolved]
  - Flushing [Not Recovered/Not Resolved]
  - Vomiting [Unknown]
